FAERS Safety Report 13577801 (Version 5)
Quarter: 2018Q2

REPORT INFORMATION
  Report Type: Spontaneous
  Country: US (occurrence: US)
  Receive Date: 20170524
  Receipt Date: 20180606
  Transmission Date: 20180711
  Serious: No
  Sender: FDA-Public Use
  Company Number: US-PFIZER INC-2017224682

PATIENT
  Age: 53 Year
  Sex: Female
  Weight: 62 kg

DRUGS (10)
  1. DECADRON [Concomitant]
     Active Substance: DEXAMETHASONE
     Dosage: UNK
  2. ESTROGEN [Concomitant]
     Active Substance: ESTROGENS
     Indication: HORMONE REPLACEMENT THERAPY
     Dosage: UNK, DAILY
     Route: 048
     Dates: start: 2009, end: 201308
  3. CARBOPLATIN. [Concomitant]
     Active Substance: CARBOPLATIN
     Indication: CHEMOTHERAPY
     Dosage: UNK
  4. TESTOSTERONE. [Concomitant]
     Active Substance: TESTOSTERONE
     Indication: HORMONE REPLACEMENT THERAPY
     Dosage: UNK, MONTHLY (SHOTS)
     Dates: start: 2009, end: 201308
  5. TAXOTERE [Concomitant]
     Active Substance: DOCETAXEL
     Dosage: UNK
  6. DOCETAXEL. [Suspect]
     Active Substance: DOCETAXEL
     Indication: TRIPLE NEGATIVE BREAST CANCER
     Dosage: 128 MG, EVERY 3 WEEKS (EIGHT CYCLES)
     Dates: start: 20130708, end: 20131219
  7. PROGESTERONE. [Concomitant]
     Active Substance: PROGESTERONE
     Indication: HORMONE REPLACEMENT THERAPY
     Dosage: UNK, DAILY
     Route: 048
     Dates: start: 2009, end: 201308
  8. BENADRYL [Concomitant]
     Active Substance: DIPHENHYDRAMINE HYDROCHLORIDE
     Dosage: UNK
  9. PARAPLATIN [Concomitant]
     Active Substance: CARBOPLATIN
     Indication: CHEMOTHERAPY
     Dosage: UNK
  10. ZOFRAN [Concomitant]
     Active Substance: ONDANSETRON HYDROCHLORIDE
     Dosage: UNK

REACTIONS (6)
  - Hair disorder [Not Recovered/Not Resolved]
  - Alopecia [Not Recovered/Not Resolved]
  - Hair colour changes [Not Recovered/Not Resolved]
  - Neoplasm recurrence [Unknown]
  - Madarosis [Not Recovered/Not Resolved]
  - Hair texture abnormal [Not Recovered/Not Resolved]

NARRATIVE: CASE EVENT DATE: 20130715
